FAERS Safety Report 11136160 (Version 1)
Quarter: 2015Q2

REPORT INFORMATION
  Report Type: Spontaneous
  Country: LU (occurrence: LU)
  Receive Date: 20150526
  Receipt Date: 20150526
  Transmission Date: 20150821
  Serious: Yes (Hospitalization, Other)
  Sender: FDA-Public Use
  Company Number: LU-PFIZER INC-2015171099

PATIENT
  Age: 57 Year
  Sex: Male

DRUGS (3)
  1. NOVALGIN [Suspect]
     Active Substance: METAMIZOLE SODIUM
     Indication: BACK PAIN
     Dosage: 1 DF, SINGLE
     Route: 030
     Dates: start: 20150414, end: 20150414
  2. XYLOCAINE [Suspect]
     Active Substance: LIDOCAINE HYDROCHLORIDE
     Indication: BACK PAIN
     Dosage: 1 DF, SINGLE
     Route: 030
     Dates: start: 20150414, end: 20150414
  3. FELDENE [Suspect]
     Active Substance: PIROXICAM
     Indication: BACK PAIN
     Dosage: 1 DF, SINGLE
     Route: 030
     Dates: start: 20150414, end: 20150414

REACTIONS (2)
  - Wrong technique in drug usage process [Unknown]
  - Paraplegia [Recovered/Resolved]

NARRATIVE: CASE EVENT DATE: 20150414
